FAERS Safety Report 19443873 (Version 2)
Quarter: 2021Q3

REPORT INFORMATION
  Report Type: Spontaneous
  Country: JP (occurrence: JP)
  Receive Date: 20210621
  Receipt Date: 20210715
  Transmission Date: 20211014
  Serious: Yes (Hospitalization)
  Sender: FDA-Public Use
  Company Number: JP-DSJP-DSJ-2021-118283AA

PATIENT
  Age: 85 Year
  Sex: Female

DRUGS (1)
  1. LIXIANA TABLETS [Suspect]
     Active Substance: EDOXABAN TOSYLATE
     Indication: DEEP VEIN THROMBOSIS
     Dosage: UNK
     Route: 048

REACTIONS (2)
  - Compression fracture [Unknown]
  - Osteorrhagia [Recovering/Resolving]
